FAERS Safety Report 16149575 (Version 1)
Quarter: 2019Q2

REPORT INFORMATION
  Report Type: Spontaneous
  Country: DK (occurrence: DK)
  Receive Date: 20190402
  Receipt Date: 20190402
  Transmission Date: 20190711
  Serious: Yes (Other)
  Sender: FDA-Public Use
  Company Number: DK-TEVA-2019-DK-1031158

PATIENT
  Age: 43 Year
  Sex: Male

DRUGS (5)
  1. CISPLATIN. [Suspect]
     Active Substance: CISPLATIN
     Indication: TESTIS CANCER
     Dosage: STRENGTH: 1 MG/ML. DOSE: UNKNOWN
     Route: 042
     Dates: start: 20130124
  2. ETOPOSIDE. [Suspect]
     Active Substance: ETOPOSIDE
     Indication: TESTIS CANCER
     Route: 065
     Dates: start: 20130124
  3. BLEOMYCIN [Suspect]
     Active Substance: BLEOMYCIN SULFATE
     Indication: TESTIS CANCER
     Dosage: STRENGTH AND DOSE: UNKNOWN
     Route: 042
     Dates: start: 20130124
  4. HOLOXAN [Concomitant]
     Active Substance: IFOSFAMIDE
     Indication: TESTIS CANCER
     Route: 042
     Dates: start: 201307, end: 201307
  5. PACLITAXEL. [Concomitant]
     Active Substance: PACLITAXEL
     Indication: TESTIS CANCER
     Route: 042
     Dates: start: 201307, end: 201307

REACTIONS (7)
  - Polyneuropathy [Not Recovered/Not Resolved]
  - Dizziness [Unknown]
  - Neurotoxicity [Not Recovered/Not Resolved]
  - Neuralgia [Unknown]
  - Tinnitus [Unknown]
  - Sensory disturbance [Not Recovered/Not Resolved]
  - Sleep disorder [Not Recovered/Not Resolved]

NARRATIVE: CASE EVENT DATE: 2013
